FAERS Safety Report 23192212 (Version 1)
Quarter: 2023Q4

REPORT INFORMATION
  Report Type: Spontaneous
  Country: US (occurrence: US)
  Receive Date: 20231116
  Receipt Date: 20231116
  Transmission Date: 20240110
  Serious: No
  Sender: FDA-Public Use
  Company Number: US-MYLANLABS-2023M1120910

PATIENT
  Age: 74 Year
  Sex: Male
  Weight: 77.11 kg

DRUGS (1)
  1. VALSARTAN [Suspect]
     Active Substance: VALSARTAN
     Indication: Hypertension
     Dosage: 160 MILLIGRAM, QD
     Route: 048

REACTIONS (2)
  - Product odour abnormal [Unknown]
  - Product dose omission issue [Unknown]

NARRATIVE: CASE EVENT DATE: 20231106
